FAERS Safety Report 21878642 (Version 1)
Quarter: 2023Q1

REPORT INFORMATION
  Report Type: Spontaneous
  Country: US (occurrence: US)
  Receive Date: 20230118
  Receipt Date: 20230118
  Transmission Date: 20230418
  Serious: No
  Sender: FDA-Public Use
  Company Number: US-INCYTE CORPORATION-2023IN000243

PATIENT

DRUGS (2)
  1. JAKAFI [Suspect]
     Active Substance: RUXOLITINIB
     Indication: Chronic graft versus host disease
     Route: 048
  2. REZUROCK [Concomitant]
     Active Substance: BELUMOSUDIL
     Indication: Product used for unknown indication
     Route: 065

REACTIONS (5)
  - Chest pain [Unknown]
  - Gait inability [Unknown]
  - Product dose omission issue [Unknown]
  - Musculoskeletal chest pain [Unknown]
  - Myalgia [Unknown]
